FAERS Safety Report 5024709-4 (Version None)
Quarter: 2006Q2

REPORT INFORMATION
  Report Type: 
  Country: None (occurrence: None)
  Receive Date: 20060427
  Receipt Date: 20060111
  Transmission Date: 20061013
  Serious: Yes (Hospitalization)
  Sender: FDA-Public Use
  Company Number: 2006007890

PATIENT
  Age: 56 Year
  Sex: Male

DRUGS (4)
  1. ZITHROMAX [Suspect]
     Indication: SINUSITIS
     Dosage: 500 MG (500 MG, 1 IN 1 D), ORAL
     Route: 048
     Dates: start: 20051022, end: 20051025
  2. LISINOPRIL W/HYDROCHLOROTHIAZIDE (HYDROCHLOROTHIAZIDE, LISINOPRIL) [Suspect]
     Indication: HYPERTENSION
     Dosage: 20MG/ 25MG (1 IN 1 D), ORAL
     Route: 048
     Dates: start: 20051022, end: 20051023
  3. MICARDIS HCT [Concomitant]
  4. ANTIHYPERTENSIVES (ANTIHYPERTENSIVES) [Concomitant]

REACTIONS (2)
  - FATIGUE [None]
  - SYNCOPE [None]
